FAERS Safety Report 5926640-6 (Version None)
Quarter: 2008Q4

REPORT INFORMATION
  Report Type: 
  Country: None (occurrence: None)
  Receive Date: 20081022
  Receipt Date: 20081016
  Transmission Date: 20090506
  Serious: Yes (Hospitalization)
  Sender: FDA-Public Use
  Company Number: D0058827A

PATIENT
  Sex: Female

DRUGS (3)
  1. SALBUHEXAL [Suspect]
     Route: 055
  2. FORADIL [Concomitant]
     Route: 065
     Dates: start: 20080101
  3. SPIRIVA [Concomitant]
     Route: 065
     Dates: start: 20080101

REACTIONS (4)
  - ABDOMINAL PAIN [None]
  - CANDIDIASIS [None]
  - CHEST PAIN [None]
  - RESPIRATORY TRACT INFECTION VIRAL [None]
